FAERS Safety Report 7301350-1 (Version None)
Quarter: 2011Q1

REPORT INFORMATION
  Report Type: 
  Country: None (occurrence: None)
  Receive Date: 20110218
  Receipt Date: 20110208
  Transmission Date: 20110831
  Serious: Yes (Other)
  Sender: FDA-Public Use
  Company Number: US-NOVOPROD-323005

PATIENT
  Sex: Female
  Weight: 55.782 kg

DRUGS (5)
  1. VITAMIN D                          /00318501/ [Concomitant]
     Indication: PRODUCT USED FOR UNKNOWN INDICATION
  2. XANAX [Concomitant]
     Indication: PRODUCT USED FOR UNKNOWN INDICATION
  3. VAGIFEM [Suspect]
     Indication: PRODUCT USED FOR UNKNOWN INDICATION
     Dosage: 25 MCG, UNK
     Route: 067
     Dates: start: 20080101
  4. HYDROCODONE [Concomitant]
     Indication: NECK PAIN
     Dosage: 650 MG, PRN
  5. HYDROCODONE [Concomitant]
     Indication: BACK PAIN

REACTIONS (16)
  - MALAISE [None]
  - DECREASED APPETITE [None]
  - SUICIDAL IDEATION [None]
  - MENTAL DISORDER [None]
  - VULVOVAGINAL DRYNESS [None]
  - WEIGHT DECREASED [None]
  - CHEST PAIN [None]
  - CONFUSIONAL STATE [None]
  - VOMITING [None]
  - LIBIDO DECREASED [None]
  - DIZZINESS [None]
  - DEPRESSION [None]
  - AMNESIA [None]
  - BALANCE DISORDER [None]
  - HEADACHE [None]
  - MIGRAINE [None]
